FAERS Safety Report 9848538 (Version 1)
Quarter: 2013Q4

REPORT INFORMATION
  Report Type: Spontaneous
  Country: US (occurrence: None)
  Receive Date: 20131226
  Receipt Date: 20131226
  Transmission Date: 20140711
  Serious: Yes (Hospitalization, Other)
  Sender: FDA-Public Use
  Company Number: PHEH2012US018617

PATIENT
  Sex: Female

DRUGS (4)
  1. VALTURNA [Suspect]
     Dosage: 4 PILLS,
  2. LIPITOR (ATORVASTATIN CALCIUM) [Concomitant]
  3. FUROSEMIDE (FUROSEMIDE) [Concomitant]
  4. OMEPRAZOLE (OMEPRAZOLE) [Concomitant]

REACTIONS (2)
  - Blood pressure increased [None]
  - Wrong technique in drug usage process [None]
